FAERS Safety Report 4636154-1 (Version None)
Quarter: 2005Q2

REPORT INFORMATION
  Report Type: 
  Country: None (occurrence: None)
  Receive Date: 20050415
  Receipt Date: 20050404
  Transmission Date: 20051028
  Serious: Yes (Hospitalization)
  Sender: FDA-Public Use
  Company Number: FR-BRISTOL-MYERS SQUIBB COMPANY-12921482

PATIENT
  Age: 75 Year
  Sex: Female
  Weight: 60 kg

DRUGS (5)
  1. APROVEL [Suspect]
     Route: 048
  2. ASASANTINE [Suspect]
     Indication: EPILEPSY
  3. FLECAINE [Suspect]
  4. NOOTROPYL [Suspect]
  5. LAMICTAL [Suspect]
     Dates: start: 20041130, end: 20050106

REACTIONS (6)
  - ANAEMIA [None]
  - CONJUNCTIVITIS [None]
  - DERMATITIS EXFOLIATIVE [None]
  - PYREXIA [None]
  - RASH ERYTHEMATOUS [None]
  - RENAL FAILURE [None]
